FAERS Safety Report 19948216 (Version 1)
Quarter: 2021Q4

REPORT INFORMATION
  Report Type: Spontaneous
  Country: US (occurrence: US)
  Receive Date: 20211013
  Receipt Date: 20211013
  Transmission Date: 20220303
  Serious: Yes (Other)
  Sender: FDA-Public Use
  Company Number: US-STRIDES ARCOLAB LIMITED-2020SP012629

PATIENT
  Sex: Male

DRUGS (1)
  1. POLYETHYLENE GLYCOL 3350 [Suspect]
     Active Substance: POLYETHYLENE GLYCOL 3350
     Indication: Colonoscopy
     Dosage: UNK
     Route: 048
     Dates: end: 20201014

REACTIONS (5)
  - Melaena [Unknown]
  - Haematochezia [Unknown]
  - Anal incontinence [Unknown]
  - Faeces discoloured [Unknown]
  - Diarrhoea [Unknown]
